FAERS Safety Report 10200411 (Version 1)
Quarter: 2014Q2

REPORT INFORMATION
  Report Type: Spontaneous
  Country: GB (occurrence: GB)
  Receive Date: 20140528
  Receipt Date: 20140528
  Transmission Date: 20141212
  Serious: Yes (Disabling, Other)
  Sender: FDA-Public Use
  Company Number: GB-AMGEN INC.-GBRSP2014037681

PATIENT
  Age: 54 Year
  Sex: Female
  Weight: 56 kg

DRUGS (13)
  1. XGEVA [Suspect]
     Indication: METASTASES TO BONE
     Dosage: UNK
     Route: 051
     Dates: start: 20131231, end: 20140501
  2. ANASTROZOLE [Concomitant]
     Route: 065
  3. ASPIRIN [Concomitant]
     Route: 065
  4. FERROUS SULPHATE                   /00023503/ [Concomitant]
     Route: 065
  5. FYBOGEL [Concomitant]
     Route: 065
  6. LERCANIDIPINE [Concomitant]
     Route: 065
  7. METFORMIN [Concomitant]
     Route: 065
  8. NADOLOL [Concomitant]
     Route: 065
  9. OMEPRAZOLE [Concomitant]
     Route: 065
  10. PARACETAMOL [Concomitant]
     Route: 065
  11. RAMIPRIL [Concomitant]
     Route: 065
  12. SIMVASTATIN [Concomitant]
     Route: 065
  13. ZOPICLONE [Concomitant]
     Route: 065

REACTIONS (1)
  - Osteonecrosis of jaw [Unknown]
